FAERS Safety Report 5397094-6 (Version None)
Quarter: 2007Q3

REPORT INFORMATION
  Report Type: 
  Country: None (occurrence: None)
  Receive Date: 20070725
  Receipt Date: 20070712
  Transmission Date: 20080115
  Serious: Yes (Death, Other)
  Sender: FDA-Public Use
  Company Number: US-PFIZER INC-2006119067

PATIENT
  Sex: Female
  Weight: 65.8 kg

DRUGS (3)
  1. BEXTRA [Suspect]
     Indication: RHEUMATOID ARTHRITIS
     Route: 048
     Dates: start: 20040920, end: 20041019
  2. VIOXX [Suspect]
     Indication: RHEUMATOID ARTHRITIS
     Dosage: TEXT:25MG + 12.5MG-FREQ:1 + 3-4 TIMES A DAY AS NEEDED
     Route: 048
     Dates: start: 20030818, end: 20040808
  3. HYDROCHLOROTHIAZIDE [Concomitant]
     Indication: HYPERTENSION

REACTIONS (1)
  - MYOCARDIAL INFARCTION [None]
